FAERS Safety Report 21950430 (Version 2)
Quarter: 2023Q4

REPORT INFORMATION
  Report Type: Report from Study
  Country: AU (occurrence: AU)
  Receive Date: 20230203
  Receipt Date: 20231019
  Transmission Date: 20240110
  Serious: No
  Sender: FDA-Public Use
  Company Number: AU-PFIZER INC-202300046462

PATIENT
  Age: 9 Year
  Sex: Female
  Weight: 56.9 kg

DRUGS (4)
  1. VINCRISTINE SULFATE [Suspect]
     Active Substance: VINCRISTINE SULFATE
     Indication: Astrocytoma
     Dosage: UNK
  2. THIOGUANINE [Suspect]
     Active Substance: THIOGUANINE
     Indication: Astrocytoma
     Dosage: UNK
  3. PROCARBAZINE [Suspect]
     Active Substance: PROCARBAZINE
     Indication: Astrocytoma
     Dosage: UNK
  4. LOMUSTINE [Suspect]
     Active Substance: LOMUSTINE
     Indication: Astrocytoma
     Dosage: UNK

REACTIONS (1)
  - Off label use [Unknown]
